FAERS Safety Report 11506227 (Version 1)
Quarter: 2015Q3

REPORT INFORMATION
  Report Type: Spontaneous
  Country: US (occurrence: US)
  Receive Date: 20150915
  Receipt Date: 20150915
  Transmission Date: 20151125
  Serious: Yes (Other)
  Sender: FDA-Public Use
  Company Number: US-SA-2015SA133634

PATIENT
  Age: 49 Year
  Sex: Female

DRUGS (3)
  1. IMOVAX RABIES [Suspect]
     Active Substance: RABIES VIRUS STRAIN PM-1503-3M ANTIGEN (PROPIOLACTONE INACTIVATED)
     Indication: IMMUNISATION
     Route: 030
     Dates: start: 20120912, end: 20120912
  2. IMOGAM RABIES [Suspect]
     Active Substance: HUMAN RABIES VIRUS IMMUNE GLOBULIN
     Indication: IMMUNISATION
     Route: 030
     Dates: start: 20120912, end: 20120912
  3. IMOVAX RABIES [Suspect]
     Active Substance: RABIES VIRUS STRAIN PM-1503-3M ANTIGEN (PROPIOLACTONE INACTIVATED)
     Indication: IMMUNISATION
     Route: 058
     Dates: start: 20120912, end: 20120912

REACTIONS (8)
  - Pain [Not Recovered/Not Resolved]
  - Fibromyalgia [Not Recovered/Not Resolved]
  - Anaemia [Not Recovered/Not Resolved]
  - Malaise [Not Recovered/Not Resolved]
  - Wrong drug administered [Unknown]
  - Incorrect route of drug administration [Unknown]
  - Underdose [Unknown]
  - Vaccination site reaction [Not Recovered/Not Resolved]

NARRATIVE: CASE EVENT DATE: 20120915
